FAERS Safety Report 8010124-8 (Version None)
Quarter: 2011Q4

REPORT INFORMATION
  Report Type: 
  Country: None (occurrence: None)
  Receive Date: 20111228
  Receipt Date: 20111219
  Transmission Date: 20120403
  Serious: Yes (Hospitalization)
  Sender: FDA-Public Use
  Company Number: FO-UCBSA-048018

PATIENT
  Age: 51 Year
  Sex: Male

DRUGS (2)
  1. VIMPAT [Suspect]
     Indication: EPILEPSY
     Route: 048
     Dates: end: 20110701
  2. VIMPAT [Suspect]
     Route: 048
     Dates: start: 20110501, end: 20110101

REACTIONS (4)
  - PSYCHOMOTOR RETARDATION [None]
  - AUTONOMIC NERVOUS SYSTEM IMBALANCE [None]
  - SOMNOLENCE [None]
  - DISTURBANCE IN ATTENTION [None]
